FAERS Safety Report 9163202 (Version 1)
Quarter: 2013Q1

REPORT INFORMATION
  Report Type: Spontaneous
  Country: US (occurrence: None)
  Receive Date: 20130313
  Receipt Date: 20130313
  Transmission Date: 20140127
  Serious: Yes (Hospitalization)
  Sender: FDA-Public Use
  Company Number: None

PATIENT
  Age: 70 Year
  Sex: Male
  Weight: 91 kg

DRUGS (1)
  1. HEPARIN [Suspect]
     Dosage: 8 U^KG, 18 U/KG/HR IV DRIP
     Route: 041
     Dates: start: 20130306, end: 20130308

REACTIONS (1)
  - No therapeutic response [None]
